FAERS Safety Report 7755675-6 (Version None)
Quarter: 2011Q3

REPORT INFORMATION
  Report Type: 
  Country: None (occurrence: None)
  Receive Date: 20110916
  Receipt Date: 20110913
  Transmission Date: 20111222
  Serious: Yes (Other)
  Sender: FDA-Public Use
  Company Number: US-PFIZER INC-2011174933

PATIENT
  Sex: Male
  Weight: 113 kg

DRUGS (1)
  1. FLAGYL [Suspect]
     Indication: DYSENTERY
     Dosage: 500 MG, 3X/DAY
     Route: 048
     Dates: start: 20080220, end: 20080224

REACTIONS (5)
  - HALLUCINATION [None]
  - ADVERSE EVENT [None]
  - ANXIETY [None]
  - DEPERSONALISATION [None]
  - HYPERTENSION [None]
